FAERS Safety Report 5104065-3 (Version None)
Quarter: 2006Q3

REPORT INFORMATION
  Report Type: 
  Country: None (occurrence: None)
  Receive Date: 20060911
  Receipt Date: 20060828
  Transmission Date: 20061208
  Serious: Yes (Hospitalization, Disabling)
  Sender: FDA-Public Use
  Company Number: CZ200605003671

PATIENT
  Age: 44 Year
  Sex: Male

DRUGS (8)
  1. ZYPREXA [Suspect]
     Indication: BIPOLAR DISORDER
     Dosage: SEE IMAGE, ORAL
     Route: 048
     Dates: start: 20050317
  2. ZYPREXA [Suspect]
     Indication: BIPOLAR DISORDER
     Dosage: SEE IMAGE, ORAL
     Route: 048
     Dates: start: 20060317
  3. LAMOTRIGINE [Concomitant]
  4. PROMETHAZINE (PROMETHAZINE) TABLET [Concomitant]
  5. PLEGOMAZIN (CHLORPROMAZINE HYDROCHLORIDE) TABLET [Concomitant]
  6. CLONAZEPAM [Concomitant]
  7. PROTHIADEN [Concomitant]
  8. SEROPRAM (CITALOPRAM HYDROBROMIDE) [Concomitant]

REACTIONS (4)
  - ALCOHOLISM [None]
  - ASPIRATION [None]
  - LOSS OF CONSCIOUSNESS [None]
  - TREATMENT NONCOMPLIANCE [None]
